FAERS Safety Report 7272727 (Version 5)
Quarter: 2012Q4

REPORT INFORMATION
  Report Type: 
  Country: US (occurrence: US)
  Receive Date: 20100208
  Receipt Date: 20121004
  Transmission Date: 20130627
  Serious: Yes (Life-Threatening, Hospitalization)
  Sender: FDA-Public Use
  Company Number: US-BAYER-201013068NA

PATIENT
  Age: 23 Year
  Sex: Female
  Weight: 87.98 kg

DRUGS (12)
  1. YASMIN [Suspect]
     Indication: CONTRACEPTION
     Dosage: UNK
     Route: 048
     Dates: start: 200404, end: 200802
  2. YASMIN [Suspect]
     Indication: CONTRACEPTION
     Dosage: UNK
     Dates: start: 200609, end: 200802
  3. TYLENOL [Concomitant]
  4. IBUPROFEN [Concomitant]
     Indication: PAIN MANAGEMENT
  5. VICODIN [Concomitant]
     Indication: PAIN MANAGEMENT
  6. AMBIEN [Concomitant]
  7. PENICILLIN VK [Concomitant]
     Dosage: UNK
     Dates: start: 20071230
  8. DILAUDID [Concomitant]
     Indication: PAIN MANAGEMENT
     Dosage: UNK
     Dates: start: 20080204
  9. POTASSIUM [Concomitant]
     Indication: HYPOKALAEMIA
     Dosage: UNK
     Route: 042
     Dates: start: 200802
  10. PROTONIX [Concomitant]
  11. ZOSYN [Concomitant]
  12. HYDROCODONE [Concomitant]

REACTIONS (5)
  - Thrombosis [Unknown]
  - Portal vein thrombosis [Recovered/Resolved]
  - Thrombosis mesenteric vessel [Recovered/Resolved]
  - Pain [Recovered/Resolved]
  - Mental disorder [None]
